FAERS Safety Report 5325749-8 (Version None)
Quarter: 2007Q2

REPORT INFORMATION
  Report Type: 
  Country: None (occurrence: None)
  Receive Date: 20070515
  Receipt Date: 20070510
  Transmission Date: 20071010
  Serious: Yes (Hospitalization, Disabling)
  Sender: FDA-Public Use
  Company Number: US-MERCK-0609USA07927

PATIENT
  Age: 66 Year
  Sex: Female

DRUGS (28)
  1. FOSAMAX [Suspect]
     Indication: OSTEOPOROSIS
     Route: 048
     Dates: start: 20020101
  2. ZOMETA [Suspect]
     Route: 065
     Dates: start: 20050101, end: 20060101
  3. TIAZAC [Concomitant]
     Indication: HYPERTENSION
     Route: 065
     Dates: start: 19960101
  4. CAPTOPRIL [Concomitant]
     Indication: HYPERTENSION
     Route: 065
     Dates: start: 19960101
  5. CLONIDINE [Concomitant]
     Indication: HYPERTENSION
     Route: 065
     Dates: start: 19960101
  6. LANOXICAPS [Concomitant]
     Indication: CARDIAC FAILURE CONGESTIVE
     Route: 065
     Dates: start: 19960101
  7. K-DUR 10 [Concomitant]
     Indication: BLOOD POTASSIUM DECREASED
     Route: 065
     Dates: start: 19960101
  8. THEOPHYLLINE [Concomitant]
     Indication: LUNG DISORDER
     Route: 065
     Dates: start: 19960101
  9. LASIX [Concomitant]
     Indication: FLUID RETENTION
     Route: 065
     Dates: start: 19960101
  10. ZAROXOLYN [Concomitant]
     Indication: FLUID RETENTION
     Route: 065
     Dates: start: 19960101
  11. ALLOPURINOL [Concomitant]
     Indication: GOUT
     Route: 065
     Dates: start: 19980101
  12. COLCHICINE [Concomitant]
     Indication: GOUT
     Route: 065
     Dates: start: 19980101
  13. PREVACID [Concomitant]
     Indication: GASTROOESOPHAGEAL REFLUX DISEASE
     Route: 065
     Dates: start: 20040101
  14. LIPITOR [Concomitant]
     Indication: BLOOD CHOLESTEROL INCREASED
     Route: 065
     Dates: start: 19940101
  15. GUAIFED [Concomitant]
     Indication: ASTHMA
     Route: 065
     Dates: start: 19900101
  16. MAG-OX 400 TABLETS [Concomitant]
     Indication: MUSCLE SPASMS
     Route: 065
     Dates: start: 20040101
  17. ASPIRIN [Concomitant]
     Indication: ANTICOAGULANT THERAPY
     Route: 065
     Dates: start: 19900101
  18. OMEGA-3 MARINE TRIGLYCERIDES [Concomitant]
     Route: 065
     Dates: start: 20000101
  19. GARLIC [Concomitant]
     Route: 065
     Dates: start: 20000101
  20. ASCORBIC ACID [Concomitant]
     Route: 065
     Dates: start: 20000101
  21. VITAMIN D (UNSPECIFIED) [Concomitant]
     Route: 065
     Dates: start: 20040101
  22. VITAMIN E [Concomitant]
     Route: 065
     Dates: start: 19920101
  23. VITAMIN B COMPLEX [Concomitant]
     Route: 065
     Dates: start: 20000101
  24. CYANOCOBALAMIN [Concomitant]
     Indication: RED BLOOD CELL COUNT DECREASED
     Route: 065
     Dates: start: 20040101
  25. CENTRUM SILVER [Concomitant]
     Route: 065
     Dates: start: 20000101
  26. ALFALFA [Concomitant]
     Indication: ASTHMA
     Route: 065
     Dates: start: 19960101
  27. CALTRATE [Concomitant]
     Route: 065
     Dates: start: 20040101
  28. GLUCOSAMINE [Concomitant]
     Indication: OSTEOARTHRITIS
     Route: 065
     Dates: start: 20020101

REACTIONS (16)
  - ARTHRITIS [None]
  - BLOOD TRIGLYCERIDES INCREASED [None]
  - CONSTIPATION [None]
  - CONTUSION [None]
  - DIABETES MELLITUS [None]
  - FALL [None]
  - GASTRIC DISORDER [None]
  - HEPATIC ENZYME INCREASED [None]
  - LARGE INTESTINAL OBSTRUCTION [None]
  - MULTIPLE MYELOMA [None]
  - NERVOUSNESS [None]
  - OSTEONECROSIS [None]
  - PAIN [None]
  - PAIN IN EXTREMITY [None]
  - PERIORBITAL HAEMATOMA [None]
  - PSORIASIS [None]
